FAERS Safety Report 7841101-5 (Version None)
Quarter: 2011Q4

REPORT INFORMATION
  Report Type: 
  Country: None (occurrence: None)
  Receive Date: 20111020
  Receipt Date: 20111004
  Transmission Date: 20120403
  Serious: Yes (Life-Threatening, Hospitalization, Other)
  Sender: FDA-Public Use
  Company Number: 2011MA014916

PATIENT
  Age: 44 Year
  Sex: Female

DRUGS (15)
  1. PHENYTOIN [Suspect]
     Indication: CONVULSION PROPHYLAXIS
     Dosage: 150 MG;Q8H
  2. METOPROLOL TARTRATE [Suspect]
     Dosage: 50 MG;Q12H
  3. SIMVASTATIN [Suspect]
     Dosage: 40 MG;QD
  4. PIPERACILLIN [Suspect]
     Indication: NOSOCOMIAL INFECTION
     Dosage: 3.375 GM;Q6H
  5. PIPERACILLIN [Suspect]
     Indication: SEPSIS
     Dosage: 3.375 GM;Q6H
  6. HYDRALAZINE HCL [Suspect]
     Indication: BLOOD PRESSURE MANAGEMENT
     Dosage: 50 MG;Q6H
  7. FAMOTIDINE [Suspect]
     Dosage: 20 MG;QD
  8. CLONIDINE [Suspect]
     Indication: BLOOD PRESSURE MANAGEMENT
     Dosage: 0.3 MG;Q8H
  9. VANCOMYCIN HCL [Suspect]
     Indication: NOSOCOMIAL INFECTION
     Dosage: 1000 MG;Q12H;IV
     Route: 042
  10. VANCOMYCIN HCL [Suspect]
     Indication: SEPSIS
     Dosage: 1000 MG;Q12H;IV
     Route: 042
  11. NOREPINEPHRINE BITARTRATE [Suspect]
     Indication: MEAN ARTERIAL PRESSURE
     Dosage: IV
     Route: 042
  12. INSULIN [Suspect]
     Indication: TYPE 2 DIABETES MELLITUS
     Dosage: SC
     Route: 058
  13. TAZOBACTAM [Suspect]
     Indication: NOSOCOMIAL INFECTION
     Dosage: 3.375 GM;Q6H
  14. TAZOBACTAM [Suspect]
     Indication: SEPSIS
     Dosage: 3.375 GM;Q6H
  15. AMLODIPINE [Suspect]
     Dosage: 10 MG;QD

REACTIONS (15)
  - JAUNDICE [None]
  - DRUG RASH WITH EOSINOPHILIA AND SYSTEMIC SYMPTOMS [None]
  - MULTI-ORGAN DISORDER [None]
  - INTERNATIONAL NORMALISED RATIO INCREASED [None]
  - LABILE BLOOD PRESSURE [None]
  - RENAL IMPAIRMENT [None]
  - RED BLOOD CELL SCHISTOCYTES PRESENT [None]
  - PSEUDOMONAS TEST POSITIVE [None]
  - PYREXIA [None]
  - THROMBOCYTOPENIA [None]
  - SEPSIS SYNDROME [None]
  - NOSOCOMIAL INFECTION [None]
  - NORMOCHROMIC NORMOCYTIC ANAEMIA [None]
  - OLIGURIA [None]
  - LEUKOCYTOSIS [None]
